FAERS Safety Report 4862025-1 (Version None)
Quarter: 2005Q4

REPORT INFORMATION
  Report Type: 
  Country: None (occurrence: None)
  Receive Date: 20051129
  Receipt Date: 20050815
  Transmission Date: 20060501
  Serious: Yes (Hospitalization)
  Sender: FDA-Public Use
  Company Number: US_0409106152

PATIENT
  Age: 29 Year
  Sex: Female
  Weight: 102 kg

DRUGS (24)
  1. ZYPREXA [Suspect]
     Indication: DEPRESSION
     Dosage: 10 MG
     Dates: start: 19980724
  2. ASPIRIN [Concomitant]
  3. RISPERDAL [Concomitant]
  4. CLARITIN [Concomitant]
  5. BEXTRA [Concomitant]
  6. DIOVAN [Concomitant]
  7. NAPROXEN SODIUM [Concomitant]
  8. OMNICEF [Concomitant]
  9. FLEXERIL [Concomitant]
  10. CELEXA [Concomitant]
  11. KEFLEX [Concomitant]
  12. ALBUTEROL [Concomitant]
  13. PREVACID [Concomitant]
  14. FLUTICASONE [Concomitant]
  15. SALMETEROL [Concomitant]
  16. SINGULAIR [Concomitant]
  17. WELLBUTRIN [Concomitant]
  18. XANAX (ALPRAZOLAM DUM) [Concomitant]
  19. TIZANIDINE HCL [Concomitant]
  20. DARVOCET-N 50 [Concomitant]
  21. SOMA [Concomitant]
  22. CLARINEX [Concomitant]
  23. ULTRACEF (CEFADROXIL) [Concomitant]
  24. ADVAIR DISKUS 250/50 [Concomitant]

REACTIONS (23)
  - APPENDICECTOMY [None]
  - ARTHRALGIA [None]
  - BLOOD GLUCOSE INCREASED [None]
  - CELLULITIS [None]
  - COLD SWEAT [None]
  - DIABETES MELLITUS [None]
  - DIZZINESS [None]
  - GASTROINTESTINAL DISORDER [None]
  - GLYCOSURIA [None]
  - HYPERLIPIDAEMIA [None]
  - HYPOAESTHESIA [None]
  - INGROWING NAIL [None]
  - LOWER RESPIRATORY TRACT INFECTION [None]
  - MENORRHAGIA [None]
  - MITRAL VALVE INCOMPETENCE [None]
  - NECK PAIN [None]
  - PAIN [None]
  - PARAESTHESIA [None]
  - RASH [None]
  - SINUS TACHYCARDIA [None]
  - TRICUSPID VALVE INCOMPETENCE [None]
  - VENTRICULAR HYPERTROPHY [None]
  - VISUAL ACUITY REDUCED [None]
